FAERS Safety Report 5676912-8 (Version None)
Quarter: 2008Q1

REPORT INFORMATION
  Report Type: 
  Country: None (occurrence: None)
  Receive Date: 20080324
  Receipt Date: 20080312
  Transmission Date: 20080703
  Serious: Yes (Hospitalization, Other)
  Sender: FDA-Public Use
  Company Number: US-ELI_LILLY_AND_COMPANY-US200803002507

PATIENT
  Sex: Female

DRUGS (2)
  1. ZYPREXA [Suspect]
     Indication: SCHIZOPHRENIA
     Dosage: 10 MG, UNK
     Route: 048
     Dates: end: 20080301
  2. WELLBUTRIN [Concomitant]
     Dosage: 200 MG, UNK
     Route: 048
     Dates: end: 20080301

REACTIONS (4)
  - ANALGESIC DRUG LEVEL INCREASED [None]
  - CATATONIA [None]
  - SEROTONIN SYNDROME [None]
  - TACHYPNOEA [None]
